FAERS Safety Report 25833973 (Version 2)
Quarter: 2025Q4

REPORT INFORMATION
  Report Type: Spontaneous
  Country: JP (occurrence: JP)
  Receive Date: 20250923
  Receipt Date: 20251031
  Transmission Date: 20260117
  Serious: Yes (Hospitalization, Other)
  Sender: MERCK SHARP & DOHME LLC
  Company Number: JP-009507513-2331974

PATIENT
  Age: 15 Year
  Sex: Female
  Weight: 74 kg

DRUGS (10)
  1. ROCURONIUM [Suspect]
     Active Substance: ROCURONIUM BROMIDE
     Indication: Induction of anaesthesia
  2. SUGAMMADEX [Suspect]
     Active Substance: SUGAMMADEX
  3. REMIFENTANIL [Suspect]
     Active Substance: REMIFENTANIL
     Indication: Maintenance of anaesthesia
  4. CEFMETAZOLE [Concomitant]
     Active Substance: CEFMETAZOLE
  5. betamethasone (RINDERON) [Concomitant]
  6. FENTANYL [Suspect]
     Active Substance: FENTANYL
     Indication: Maintenance of anaesthesia
  7. phenylephrine hydrochloride (NEOSYNESIN) [Concomitant]
     Indication: Maintenance of anaesthesia
  8. PROPOFOL [Suspect]
     Active Substance: PROPOFOL
     Indication: Induction of anaesthesia
     Dosage: STRENGTH: 1%
  9. ROCURONIUM BROMIDE [Suspect]
     Active Substance: ROCURONIUM BROMIDE
  10. SUGAMMADEX SODIUM [Suspect]
     Active Substance: SUGAMMADEX SODIUM

REACTIONS (9)
  - Neuropathy peripheral [Recovering/Resolving]
  - Peripheral swelling [Recovering/Resolving]
  - Feeling hot [Recovered/Resolved]
  - Administration site extravasation [Recovering/Resolving]
  - Feeling hot [Recovering/Resolving]
  - Pain [Recovering/Resolving]
  - Pruritus [Recovering/Resolving]
  - Pain [Recovered/Resolved]
  - Product administered to patient of inappropriate age [Unknown]
